FAERS Safety Report 7131099-X (Version None)
Quarter: 2010Q4

REPORT INFORMATION
  Report Type: 
  Country: None (occurrence: None)
  Receive Date: 20101124
  Receipt Date: 20101124
  Transmission Date: 20110411
  Serious: Yes (Other)
  Sender: FDA-Public Use
  Company Number: None

PATIENT
  Age: 75 Year
  Sex: Female
  Weight: 85.7298 kg

DRUGS (2)
  1. CEPHALEXIN [Suspect]
     Indication: HIP ARTHROPLASTY
     Dates: start: 20101005
  2. CEPHALEXIN [Suspect]
     Indication: PROPHYLAXIS
     Dates: start: 20101005

REACTIONS (3)
  - DIARRHOEA [None]
  - PRODUCT ODOUR ABNORMAL [None]
  - PRODUCT SUBSTITUTION ISSUE [None]
